FAERS Safety Report 10378452 (Version 1)
Quarter: 2014Q1

REPORT INFORMATION
  Report Type: Spontaneous
  Country: US (occurrence: None)
  Receive Date: 20140306
  Receipt Date: 20140306
  Transmission Date: 20141002
  Serious: Yes (Disabling)
  Sender: FDA-Public Use
  Company Number: 163-21880-13023183

PATIENT
  Age: 60 Year
  Sex: Male
  Weight: 92.99 kg

DRUGS (9)
  1. REVLIMID (LENALIDOMIDE) (25 MILLIGRAM, CAPSULES) [Suspect]
     Indication: PLASMA CELL MYELOMA
     Route: 048
     Dates: start: 20110401
  2. HYDROCODONE-IBUPROFEN (VICOPROFEN) [Concomitant]
  3. BACTRIM [Concomitant]
  4. MULTI MEGA MINERAL (MULTIVITAMIN AND MINERAL) [Concomitant]
  5. OS-CAL 500+ D (CALCITE D) [Concomitant]
  6. HYDROCODONE [Concomitant]
  7. VELCADE (BORTEZOMIB) [Concomitant]
  8. DECADRON (DEXAMETHASONE) [Concomitant]
  9. ZOMETA (ZOLEDRONIC ACID) [Concomitant]

REACTIONS (2)
  - Pathological fracture [None]
  - Pain [None]
